FAERS Safety Report 20282512 (Version 1)
Quarter: 2022Q1

REPORT INFORMATION
  Report Type: Spontaneous
  Country: US (occurrence: None)
  Receive Date: 20220101
  Receipt Date: 20220101
  Transmission Date: 20220423
  Serious: No
  Sender: FDA-Public Use
  Company Number: None

PATIENT
  Age: 66 Year
  Sex: Male
  Weight: 47 kg

DRUGS (1)
  1. ISONIAZID [Suspect]
     Active Substance: ISONIAZID
     Indication: Latent tuberculosis
     Dosage: FREQUENCY : DAILY;?
     Route: 048
     Dates: start: 20210315, end: 20210510

REACTIONS (2)
  - Hepatic enzyme increased [None]
  - Jaundice [None]

NARRATIVE: CASE EVENT DATE: 20210510
